FAERS Safety Report 21672897 (Version 1)
Quarter: 2022Q4

REPORT INFORMATION
  Report Type: Spontaneous
  Country: US (occurrence: US)
  Receive Date: 20221202
  Receipt Date: 20221202
  Transmission Date: 20230113
  Serious: No
  Sender: FDA-Public Use
  Company Number: US-BRISTOL-MYERS SQUIBB COMPANY-2022-146796

PATIENT
  Age: 65 Year
  Sex: Male

DRUGS (3)
  1. IDHIFA [Suspect]
     Active Substance: ENASIDENIB MESYLATE
     Indication: Acute myeloid leukaemia
     Route: 048
  2. IDHIFA [Suspect]
     Active Substance: ENASIDENIB MESYLATE
     Indication: Polycythaemia vera
  3. IDHIFA [Suspect]
     Active Substance: ENASIDENIB MESYLATE
     Indication: Myelofibrosis

REACTIONS (1)
  - Rash [Unknown]
